FAERS Safety Report 6332997-7 (Version None)
Quarter: 2009Q3

REPORT INFORMATION
  Report Type: 
  Country: None (occurrence: None)
  Receive Date: 20090828
  Receipt Date: 20090826
  Transmission Date: 20100115
  Serious: Yes (Death, Other)
  Sender: FDA-Public Use
  Company Number: PHHY2009GB36087

PATIENT
  Age: 44 Year
  Sex: Male

DRUGS (5)
  1. CYCLOSPORINE [Suspect]
     Indication: STEM CELL TRANSPLANT
  2. METHYLPREDNISOLONE [Suspect]
     Indication: STEM CELL TRANSPLANT
  3. FLUDARABINE PHOSPHATE [Concomitant]
  4. MELPHALAN HYDROCHLORIDE [Concomitant]
  5. ALEMTUZUMAB [Concomitant]

REACTIONS (5)
  - DEATH [None]
  - DIARRHOEA [None]
  - GASTROENTERITIS NOROVIRUS [None]
  - NAUSEA [None]
  - VOMITING [None]
